FAERS Safety Report 15730352 (Version 2)
Quarter: 2019Q1

REPORT INFORMATION
  Report Type: Spontaneous
  Country: US (occurrence: US)
  Receive Date: 20181217
  Receipt Date: 20190225
  Transmission Date: 20190417
  Serious: Yes (Other)
  Sender: FDA-Public Use
  Company Number: US-SA-2018SA337381

PATIENT
  Sex: Female

DRUGS (3)
  1. TAXOTERE [Suspect]
     Active Substance: DOCETAXEL
     Indication: BREAST CANCER FEMALE
     Dosage: 20MG-80MG, Q3W
     Route: 042
     Dates: start: 20150427, end: 20150427
  2. TAXOTERE [Suspect]
     Active Substance: DOCETAXEL
     Dosage: 20MG-80MG, Q3W
     Route: 042
     Dates: start: 20150901, end: 20150901
  3. PARAPLATIN [Concomitant]
     Active Substance: CARBOPLATIN

REACTIONS (1)
  - Alopecia [Not Recovered/Not Resolved]
